FAERS Safety Report 13362967 (Version 2)
Quarter: 2017Q2

REPORT INFORMATION
  Report Type: Other
  Country: IT (occurrence: IT)
  Receive Date: 20170323
  Receipt Date: 20170413
  Transmission Date: 20170830
  Serious: Yes (Other)
  Sender: FDA-Public Use
  Company Number: IT-APOTEX-2017AP008428

PATIENT
  Age: 65 Year
  Sex: Male

DRUGS (1)
  1. ATORVASTATINA DOC GENERICI COMPRESSE RIVESTITE CON FILM [Suspect]
     Active Substance: ATORVASTATIN
     Indication: DRESSLER^S SYNDROME
     Dosage: 40 MG, QD
     Route: 048
     Dates: start: 20161121, end: 20170127

REACTIONS (5)
  - Blood bilirubin increased [Unknown]
  - Gamma-glutamyltransferase increased [Unknown]
  - Pyrexia [Unknown]
  - Jaundice [Unknown]
  - Transaminases increased [Unknown]

NARRATIVE: CASE EVENT DATE: 20170117
